FAERS Safety Report 19821151 (Version 1)
Quarter: 2021Q3

REPORT INFORMATION
  Report Type: Spontaneous
  Country: US (occurrence: US)
  Receive Date: 20210913
  Receipt Date: 20210913
  Transmission Date: 20211014
  Serious: No
  Sender: FDA-Public Use
  Company Number: None

PATIENT
  Age: 37 Year
  Sex: Female
  Weight: 82.55 kg

DRUGS (3)
  1. MULTIVITAMIN [Concomitant]
     Active Substance: VITAMINS
  2. IBUPROFEN. [Concomitant]
     Active Substance: IBUPROFEN
  3. PARAGARD T 380A [Suspect]
     Active Substance: COPPER

REACTIONS (4)
  - Pain [None]
  - Device breakage [None]
  - Embedded device [None]
  - Device issue [None]

NARRATIVE: CASE EVENT DATE: 20210908
